FAERS Safety Report 8215957-0 (Version None)
Quarter: 2012Q1

REPORT INFORMATION
  Report Type: 
  Country: None (occurrence: None)
  Receive Date: 20120316
  Receipt Date: 20120313
  Transmission Date: 20120608
  Serious: No
  Sender: FDA-Public Use
  Company Number: US-PFIZER INC-2012067571

PATIENT
  Sex: Female
  Weight: 63.492 kg

DRUGS (3)
  1. SIMVASTATIN [Concomitant]
     Dosage: 20 MG, DAILY
  2. ADVIL CONGESTION RELIEF [Suspect]
     Indication: VIRAL UPPER RESPIRATORY TRACT INFECTION
  3. ADVIL CONGESTION RELIEF [Suspect]
     Indication: UPPER RESPIRATORY TRACT CONGESTION
     Dosage: ONE TABLET EVERY FOUR HOURS AS NEEDED
     Route: 048
     Dates: start: 20120309, end: 20120310

REACTIONS (1)
  - DRUG INEFFECTIVE [None]
